FAERS Safety Report 20504910 (Version 1)
Quarter: 2022Q1

REPORT INFORMATION
  Report Type: Report from Study
  Country: IT (occurrence: IT)
  Receive Date: 20220223
  Receipt Date: 20220223
  Transmission Date: 20220423
  Serious: Yes (Death, Life-Threatening, Hospitalization, Other)
  Sender: FDA-Public Use
  Company Number: IT-AMGEN-ITACT2022029995

PATIENT
  Age: 64 Year
  Sex: Male
  Weight: 82 kg

DRUGS (9)
  1. PANITUMUMAB [Suspect]
     Active Substance: PANITUMUMAB
     Indication: Colorectal cancer metastatic
     Dosage: 540 MILLIGRAM
     Route: 065
     Dates: start: 20180518
  2. PANITUMUMAB [Suspect]
     Active Substance: PANITUMUMAB
     Dosage: 460 MILLIGRAM
     Route: 065
     Dates: end: 20180928
  3. FLUOROURACIL [Suspect]
     Active Substance: FLUOROURACIL
     Indication: Colorectal cancer metastatic
     Dosage: 4800 MILLIGRAM
     Route: 065
     Dates: start: 20180518
  4. FLUOROURACIL [Suspect]
     Active Substance: FLUOROURACIL
     Dosage: 3420 MILLIGRAM
     Route: 065
     Dates: end: 20180928
  5. OXALIPLATIN [Suspect]
     Active Substance: OXALIPLATIN
     Indication: Colorectal cancer metastatic
     Dosage: 170 MILLIGRAM
     Route: 065
     Dates: start: 20180518
  6. OXALIPLATIN [Suspect]
     Active Substance: OXALIPLATIN
     Dosage: 160 MILLIGRAM
     Route: 065
     Dates: end: 20180928
  7. IRINOTECAN [Suspect]
     Active Substance: IRINOTECAN
     Indication: Colorectal cancer metastatic
     Dosage: 300 MILLIGRAM
     Route: 065
     Dates: start: 20180518
  8. IRINOTECAN [Suspect]
     Active Substance: IRINOTECAN
     Dosage: 210 MILLIGRAM
     Route: 065
     Dates: end: 20180928
  9. NEBIVOLOL [Concomitant]
     Active Substance: NEBIVOLOL
     Indication: Hypertension
     Dosage: 5 MILLIGRAM, 1/2 CP/DAY
     Dates: start: 20180101

REACTIONS (4)
  - Neutropenia [Not Recovered/Not Resolved]
  - Intestinal obstruction [Fatal]
  - Thrombocytopenia [Not Recovered/Not Resolved]
  - Anaemia [Not Recovered/Not Resolved]

NARRATIVE: CASE EVENT DATE: 20180927
